FAERS Safety Report 20482145 (Version 11)
Quarter: 2022Q2

REPORT INFORMATION
  Report Type: Report from Study
  Country: CN (occurrence: None)
  Receive Date: 20220216
  Receipt Date: 20220516
  Transmission Date: 20220721
  Serious: Yes (Hospitalization)
  Sender: FDA-Public Use
  Company Number: CN-Eisai Medical Research-EC-2022-108853

PATIENT
  Age: 52 Year
  Sex: Male
  Weight: 56.2 kg

DRUGS (13)
  1. LENVATINIB [Suspect]
     Active Substance: LENVATINIB
     Indication: Oesophageal adenocarcinoma
     Route: 048
     Dates: start: 20211209, end: 20220119
  2. LENVATINIB [Suspect]
     Active Substance: LENVATINIB
     Indication: Adenocarcinoma gastric
     Dosage: STARTING DOSE 8 MG, FLUCTUATED DOSAGE
     Route: 048
     Dates: start: 20220120, end: 20220414
  3. PEMBROLIZUMAB [Suspect]
     Active Substance: PEMBROLIZUMAB
     Indication: Oesophageal adenocarcinoma
     Route: 041
     Dates: start: 20211209, end: 20211209
  4. PEMBROLIZUMAB [Suspect]
     Active Substance: PEMBROLIZUMAB
     Indication: Adenocarcinoma gastric
     Route: 041
     Dates: start: 20220120, end: 20220321
  5. CAPECITABINE [Suspect]
     Active Substance: CAPECITABINE
     Indication: Oesophageal adenocarcinoma
     Dosage: STARTING DOSE AT 1600 MILLIGRAM; TWICE A DAY (BID) FOR 14 DAYS EVERY 3 WEEKS
     Route: 048
     Dates: start: 20211209, end: 20211222
  6. CAPECITABINE [Suspect]
     Active Substance: CAPECITABINE
     Indication: Adenocarcinoma gastric
     Dosage: 1600 MILLIGRAM, TWICE A DAY (BID) FOR 14 DAYS EVERY 3 WEEKS
     Route: 048
     Dates: start: 20211223, end: 20211223
  7. CAPECITABINE [Suspect]
     Active Substance: CAPECITABINE
     Dosage: 1600 MILLIGRAM, TWICE A DAY (BID) FOR 14 DAYS EVERY 3 WEEKS
     Route: 048
     Dates: start: 20211229, end: 20220307
  8. OXALIPLATIN [Suspect]
     Active Substance: OXALIPLATIN
     Indication: Oesophageal adenocarcinoma
     Dosage: DOSE UNKNOWN
     Route: 042
     Dates: start: 20211209, end: 20211209
  9. OXALIPLATIN [Suspect]
     Active Substance: OXALIPLATIN
     Indication: Adenocarcinoma gastric
     Dosage: DOSE UNKNOWN
     Route: 042
     Dates: start: 20211229, end: 20220221
  10. OXYCODONE HYDROCHLORIDE [Concomitant]
     Active Substance: OXYCODONE HYDROCHLORIDE
     Dates: start: 20211203, end: 20211215
  11. PANTOPRAZOLE SODIUM [Concomitant]
     Active Substance: PANTOPRAZOLE SODIUM
     Dates: start: 20211211, end: 20211214
  12. ONDANSETRON HYDROCHLORIDE [Concomitant]
     Active Substance: ONDANSETRON HYDROCHLORIDE
     Dates: start: 20211211, end: 20211217
  13. POLAPREZINC [Concomitant]
     Active Substance: POLAPREZINC
     Dates: start: 20211211, end: 20211217

REACTIONS (1)
  - Amylase increased [Recovered/Resolved]

NARRATIVE: CASE EVENT DATE: 20211228
